FAERS Safety Report 9843991 (Version 1)
Quarter: 2013Q4

REPORT INFORMATION
  Report Type: Spontaneous
  Country: US (occurrence: None)
  Receive Date: 20131223
  Receipt Date: 20131223
  Transmission Date: 20140711
  Serious: No
  Sender: FDA-Public Use
  Company Number: 1000050643

PATIENT
  Age: 77 Year
  Sex: Female

DRUGS (3)
  1. LINZESS (LINACLOTIDE) (145 MICROGRAM, CAPSULES) [Suspect]
     Indication: IRRITABLE BOWEL SYNDROME
     Route: 048
     Dates: start: 20131025, end: 20131028
  2. PRAVASTATIN (PRAVASTATIN) [Concomitant]
  3. LOSARTAN (LOSARTAN) [Concomitant]

REACTIONS (3)
  - Drug ineffective [None]
  - Flatulence [None]
  - Abdominal pain [None]
